FAERS Safety Report 8034635-4 (Version None)
Quarter: 2012Q1

REPORT INFORMATION
  Report Type: 
  Country: None (occurrence: None)
  Receive Date: 20120110
  Receipt Date: 20120105
  Transmission Date: 20120608
  Serious: Yes (Disabling, Other)
  Sender: FDA-Public Use
  Company Number: US-MERCK-1110USA04117

PATIENT
  Age: 73 Year
  Sex: Female

DRUGS (4)
  1. FOSAMAX [Suspect]
     Indication: OSTEOPOROSIS
     Route: 048
     Dates: start: 19980101, end: 20100101
  2. FOSAMAX [Suspect]
     Indication: OSTEOPENIA
     Route: 048
     Dates: start: 19980101, end: 20100101
  3. CALCIUM (UNSPECIFIED) [Concomitant]
     Route: 065
  4. VITAMINS (UNSPECIFIED) [Concomitant]
     Route: 065

REACTIONS (13)
  - ANXIETY [None]
  - GASTROOESOPHAGEAL REFLUX DISEASE [None]
  - IMPAIRED HEALING [None]
  - BLINDNESS [None]
  - TOOTH ABSCESS [None]
  - DEPRESSION [None]
  - ORAL INFECTION [None]
  - ORAL NEOPLASM [None]
  - BLOOD PRESSURE ABNORMAL [None]
  - HIP FRACTURE [None]
  - ANKLE FRACTURE [None]
  - FEMUR FRACTURE [None]
  - TOOTH DISORDER [None]
